FAERS Safety Report 4316662-3 (Version None)
Quarter: 2004Q1

REPORT INFORMATION
  Report Type: 
  Country: None (occurrence: None)
  Receive Date: 20040311
  Receipt Date: 20040226
  Transmission Date: 20041129
  Serious: Yes (Other)
  Sender: FDA-Public Use
  Company Number: 2004008397

PATIENT
  Sex: Male

DRUGS (3)
  1. ZOLOFT [Suspect]
     Indication: DEPRESSION
     Dates: start: 20030101
  2. ZOLOFT [Suspect]
     Indication: SOCIAL PHOBIA
     Dates: start: 20030101
  3. ETHANOL (ETHANOL) [Suspect]
     Indication: ILL-DEFINED DISORDER
     Dosage: ORAL
     Route: 048
     Dates: start: 20040201

REACTIONS (7)
  - ALCOHOL POISONING [None]
  - ALCOHOL USE [None]
  - FALL [None]
  - HEAD INJURY [None]
  - HEART RATE INCREASED [None]
  - HEART RATE IRREGULAR [None]
  - LOSS OF CONSCIOUSNESS [None]
